FAERS Safety Report 25950937 (Version 1)
Quarter: 2025Q4

REPORT INFORMATION
  Report Type: Spontaneous
  Country: US (occurrence: US)
  Receive Date: 20251023
  Receipt Date: 20251023
  Transmission Date: 20260118
  Serious: Yes (Other)
  Sender: APOTEX
  Company Number: US-APOTEX-2025AP031290

PATIENT
  Age: 23 Year
  Sex: Female

DRUGS (7)
  1. APIXABAN [Suspect]
     Active Substance: APIXABAN
     Indication: Vertebral artery thrombosis
     Dosage: UNK
     Route: 065
  2. APIXABAN [Suspect]
     Active Substance: APIXABAN
     Indication: Renal artery thrombosis
  3. APIXABAN [Suspect]
     Active Substance: APIXABAN
     Indication: Splenic artery thrombosis
  4. ASPIRIN [Concomitant]
     Active Substance: ASPIRIN
     Indication: Vertebral artery thrombosis
     Dosage: UNK
     Route: 065
  5. ASPIRIN [Concomitant]
     Active Substance: ASPIRIN
     Indication: Renal artery thrombosis
  6. ASPIRIN [Concomitant]
     Active Substance: ASPIRIN
     Indication: Splenic artery thrombosis
  7. CARVEDILOL [Concomitant]
     Active Substance: CARVEDILOL
     Indication: Ehlers-Danlos syndrome
     Dosage: UNK
     Route: 065

REACTIONS (1)
  - Gastrointestinal haemorrhage [Unknown]
